FAERS Safety Report 18139192 (Version 5)
Quarter: 2020Q4

REPORT INFORMATION
  Report Type: Report from Study
  Country: None (occurrence: US)
  Receive Date: 20200812
  Receipt Date: 20201109
  Transmission Date: 20210113
  Serious: Yes (Hospitalization, Other)
  Sender: FDA-Public Use
  Company Number: US-INSMED, INC.-US-INS-20-01478

PATIENT
  Age: 51 Year
  Sex: Female

DRUGS (2)
  1. ARIKAYCE [Suspect]
     Active Substance: AMIKACIN
     Route: 055
     Dates: start: 202008, end: 20200812
  2. ARIKAYCE [Suspect]
     Active Substance: AMIKACIN
     Indication: MYCOBACTERIAL INFECTION
     Route: 055
     Dates: start: 20200323, end: 202007

REACTIONS (14)
  - Swelling [Unknown]
  - Illness [Unknown]
  - Hypoacusis [Unknown]
  - Diarrhoea [Not Recovered/Not Resolved]
  - Arthropod bite [Unknown]
  - Cough [Unknown]
  - Cellulitis [Not Recovered/Not Resolved]
  - Rash [Unknown]
  - Clostridium difficile colitis [Not Recovered/Not Resolved]
  - Oropharyngeal pain [Unknown]
  - Hip fracture [Unknown]
  - Nausea [Unknown]
  - Hospitalisation [Unknown]
  - Aphonia [Unknown]

NARRATIVE: CASE EVENT DATE: 2020
